FAERS Safety Report 5478157-3 (Version None)
Quarter: 2007Q4

REPORT INFORMATION
  Report Type: 
  Country: None (occurrence: None)
  Receive Date: 20071005
  Receipt Date: 20070126
  Transmission Date: 20080405
  Serious: No
  Sender: FDA-Public Use
  Company Number: US-BRISTOL-MYERS SQUIBB COMPANY-13661707

PATIENT
  Age: 78 Year
  Sex: Female

DRUGS (4)
  1. AVAPRO [Suspect]
  2. CARDIZEM LA [Concomitant]
  3. HYDROCHLOROTHIAZIDE [Concomitant]
  4. DIGITEK [Concomitant]

REACTIONS (1)
  - DRUG INEFFECTIVE [None]
